FAERS Safety Report 8015993-3 (Version None)
Quarter: 2011Q4

REPORT INFORMATION
  Report Type: 
  Country: None (occurrence: None)
  Receive Date: 20111230
  Receipt Date: 20111230
  Transmission Date: 20120403
  Serious: No
  Sender: FDA-Public Use
  Company Number: None

PATIENT

DRUGS (1)
  1. SYNERA [Suspect]
     Indication: LOCAL ANAESTHESIA
     Dosage: 1 PATCH
     Route: 061

REACTIONS (1)
  - PRODUCT PHYSICAL ISSUE [None]
